FAERS Safety Report 15737065 (Version 1)
Quarter: 2018Q4

REPORT INFORMATION
  Report Type: Spontaneous
  Country: US (occurrence: US)
  Receive Date: 20181218
  Receipt Date: 20181218
  Transmission Date: 20190205
  Serious: Yes (Hospitalization, Other)
  Sender: FDA-Public Use
  Company Number: US-MYLANLABS-2018M1091978

PATIENT
  Age: 33 Year
  Sex: Female

DRUGS (2)
  1. DOXYCYCLINE. [Suspect]
     Active Substance: DOXYCYCLINE
     Indication: POSTOPERATIVE WOUND INFECTION
     Route: 065
  2. HYDROXYCHLOROQUINE [Concomitant]
     Active Substance: HYDROXYCHLOROQUINE
     Indication: SYSTEMIC LUPUS ERYTHEMATOSUS
     Route: 065

REACTIONS (6)
  - Toxic epidermal necrolysis [Unknown]
  - Conjunctivitis [Recovering/Resolving]
  - Neuropathy peripheral [Recovering/Resolving]
  - Ulcerative keratitis [Recovering/Resolving]
  - Onychomadesis [Unknown]
  - Keratitis [Recovering/Resolving]
